FAERS Safety Report 6958009-X (Version None)
Quarter: 2010Q3

REPORT INFORMATION
  Report Type: 
  Country: None (occurrence: None)
  Receive Date: 20100830
  Receipt Date: 20100830
  Transmission Date: 20110219
  Serious: Yes (Other)
  Sender: FDA-Public Use
  Company Number: None

PATIENT
  Age: 42 Year
  Sex: Male
  Weight: 102.0593 kg

DRUGS (1)
  1. CLOMID [Suspect]
     Indication: HYPOGONADISM
     Dosage: 50 MG DAILY PO
     Route: 048
     Dates: start: 20100818, end: 20100824

REACTIONS (18)
  - ANXIETY [None]
  - CRYING [None]
  - DECREASED APPETITE [None]
  - DISTURBANCE IN ATTENTION [None]
  - DIZZINESS [None]
  - FEELING ABNORMAL [None]
  - FEELING HOT [None]
  - HEADACHE [None]
  - HEART RATE INCREASED [None]
  - IMPAIRED DRIVING ABILITY [None]
  - NAUSEA [None]
  - NIGHTMARE [None]
  - OFF LABEL USE [None]
  - PANIC ATTACK [None]
  - PHOBIA [None]
  - TACHYPHRENIA [None]
  - TREMOR [None]
  - VISION BLURRED [None]
